FAERS Safety Report 9621810 (Version 1)
Quarter: 2013Q4

REPORT INFORMATION
  Report Type: Report from Study
  Country: PL (occurrence: PL)
  Receive Date: 20131015
  Receipt Date: 20131015
  Transmission Date: 20140711
  Serious: Yes (Other)
  Sender: FDA-Public Use
  Company Number: PHHY2013PL114207

PATIENT
  Age: 58 Year
  Sex: Female

DRUGS (8)
  1. MYFORTIC [Suspect]
     Indication: IMMUNOSUPPRESSION
     Dosage: 720 MG, BID
  2. CERTICAN [Suspect]
     Indication: IMMUNOSUPPRESSION
     Dosage: UNK UKN, UNK
  3. CERTICAN [Suspect]
     Dosage: 0.75 MG, BID
  4. NEORAL [Suspect]
     Indication: IMMUNOSUPPRESSION
     Dosage: UNK UKN, UNK
  5. NEORAL [Suspect]
     Dosage: UNK UKN, UNK
  6. ADVAGRAF [Concomitant]
     Dosage: 5 MG, UNK
  7. CELLCEPT [Concomitant]
     Dosage: 2000 MG, UNK
  8. ENCORTON [Concomitant]
     Dosage: 5 MG, UNK

REACTIONS (5)
  - Ureteric stenosis [Unknown]
  - Hydronephrosis [Unknown]
  - Basal cell carcinoma [Unknown]
  - Lip neoplasm [Unknown]
  - Blood creatinine increased [Unknown]
